FAERS Safety Report 5391887-7 (Version None)
Quarter: 2007Q3

REPORT INFORMATION
  Report Type: 
  Country: None (occurrence: None)
  Receive Date: 20070718
  Receipt Date: 20070706
  Transmission Date: 20080115
  Serious: Yes (Hospitalization)
  Sender: FDA-Public Use
  Company Number: 235214K07USA

PATIENT
  Age: 60 Year
  Sex: Female

DRUGS (10)
  1. REBIF [Suspect]
     Indication: MULTIPLE SCLEROSIS
     Dosage: 44 MCG, 3 IN 1 WEEKS, SUBCUTANEOUS
     Route: 058
     Dates: start: 20050101
  2. GLUCOVANCE [Concomitant]
  3. LIPITOR [Concomitant]
  4. ENALAPRIL (ENALAPRIL) [Concomitant]
  5. METFORMIN HCL [Concomitant]
  6. AMITRIPTOLIN (ALL OTHER THERAPEUTIC PRODUCTS) [Concomitant]
  7. IMITREX [Concomitant]
  8. FURCOSIMEN (ALL OTHER THERAPEUTIC PRODUCTS) [Concomitant]
  9. EXCEDRIN (MIGRAINE) [Concomitant]
  10. BENEFIBER (CYAMOPSIS TETRAGONOLOBUS GUM) [Concomitant]

REACTIONS (10)
  - CEREBROVASCULAR ACCIDENT [None]
  - CONDITION AGGRAVATED [None]
  - CONFUSIONAL STATE [None]
  - FALL [None]
  - FIBULA FRACTURE [None]
  - JOINT DISLOCATION [None]
  - MENTAL STATUS CHANGES [None]
  - MULTIPLE SCLEROSIS [None]
  - MUSCULAR WEAKNESS [None]
  - POST PROCEDURAL COMPLICATION [None]
